FAERS Safety Report 16693670 (Version 1)
Quarter: 2019Q3

REPORT INFORMATION
  Report Type: Spontaneous
  Country: US (occurrence: US)
  Receive Date: 20190812
  Receipt Date: 20190812
  Transmission Date: 20191004
  Serious: No
  Sender: FDA-Public Use
  Company Number: US-IBSA PHARMA-TIR-2019-0175

PATIENT
  Sex: Female
  Weight: 82.63 kg

DRUGS (3)
  1. TIROSINT [Suspect]
     Active Substance: LEVOTHYROXINE SODIUM
     Indication: HYPOTHYROIDISM
     Dosage: 150MCG DAILY
     Route: 048
     Dates: start: 201901, end: 20190211
  2. SLEEPING PILL [Concomitant]
     Active Substance: UNSPECIFIED INGREDIENT
  3. BREAST CANCER PILL [Concomitant]

REACTIONS (6)
  - Blister [Recovering/Resolving]
  - Urticaria [Recovering/Resolving]
  - Pruritus [Recovering/Resolving]
  - Erythema [Recovering/Resolving]
  - Discomfort [Recovering/Resolving]
  - Herpes zoster [Recovering/Resolving]

NARRATIVE: CASE EVENT DATE: 2019
